FAERS Safety Report 23387269 (Version 1)
Quarter: 2024Q1

REPORT INFORMATION
  Report Type: Spontaneous
  Country: GB (occurrence: GB)
  Receive Date: 20240110
  Receipt Date: 20240110
  Transmission Date: 20240409
  Serious: Yes (Death, Other)
  Sender: FDA-Public Use
  Company Number: GB-TAKEDA-2022TUS044265

PATIENT

DRUGS (1)
  1. ICATIBANT [Suspect]
     Active Substance: ICATIBANT ACETATE
     Indication: Product used for unknown indication
     Dosage: 30 MILLIGRAM, NEEDLES, PRE-FILLED SYRINGE
     Route: 065

REACTIONS (3)
  - Death [Fatal]
  - Hereditary angioedema [Unknown]
  - Condition aggravated [Unknown]
